FAERS Safety Report 24055095 (Version 2)
Quarter: 2024Q3

REPORT INFORMATION
  Report Type: Spontaneous
  Country: US (occurrence: US)
  Receive Date: 20240705
  Receipt Date: 20240721
  Transmission Date: 20241016
  Serious: Yes (Life-Threatening, Hospitalization)
  Sender: TEVA
  Company Number: US-TEVA-VS-3214613

PATIENT
  Age: 43 Year
  Sex: Male

DRUGS (1)
  1. METHOTREXATE [Suspect]
     Active Substance: METHOTREXATE
     Indication: Psoriasis
     Dosage: CUMULATIVE DOSE OF 315MG.
     Route: 065

REACTIONS (13)
  - Neutropenia [Unknown]
  - Urinary tract infection [Unknown]
  - Respiratory failure [Unknown]
  - Enterococcal infection [Unknown]
  - Acute kidney injury [Unknown]
  - Staphylococcal infection [Unknown]
  - Candida infection [Unknown]
  - Septic shock [Unknown]
  - Overdose [Unknown]
  - Pancytopenia [Unknown]
  - Hyperbilirubinaemia [Unknown]
  - Renal failure [Unknown]
  - Intentional product misuse [Unknown]
